FAERS Safety Report 8428919-5 (Version None)
Quarter: 2012Q2

REPORT INFORMATION
  Report Type: 
  Country: None (occurrence: None)
  Receive Date: 20120612
  Receipt Date: 20120604
  Transmission Date: 20120825
  Serious: Yes (Other)
  Sender: FDA-Public Use
  Company Number: US-ASTELLAS-2012US004916

PATIENT
  Age: 56 Year
  Sex: Male

DRUGS (3)
  1. VESICARE [Suspect]
     Indication: MICTURITION DISORDER
     Dosage: UNK
     Route: 048
  2. AVODART [Suspect]
     Indication: BENIGN PROSTATIC HYPERPLASIA
     Dosage: 1 DF, UID/QD
     Route: 048
  3. AVODART [Suspect]
     Dosage: 1 DF, UID/QD
     Route: 048
     Dates: start: 20120509, end: 20120512

REACTIONS (4)
  - DRUG INEFFECTIVE [None]
  - SUICIDAL IDEATION [None]
  - DEPRESSION [None]
  - DRUG INTERACTION [None]
